FAERS Safety Report 5251017-9 (Version None)
Quarter: 2007Q1

REPORT INFORMATION
  Report Type: 
  Country: None (occurrence: None)
  Receive Date: 20070228
  Receipt Date: 20060809
  Transmission Date: 20070707
  Serious: No
  Sender: FDA-Public Use
  Company Number: US-GLAXOSMITHKLINE-A0616028A

PATIENT
  Age: 35 Year
  Sex: Female

DRUGS (5)
  1. LAMICTAL [Suspect]
     Dosage: 150MG TWICE PER DAY
     Route: 048
  2. WELLBUTRIN XL [Concomitant]
  3. VALTREX [Concomitant]
  4. LOESTRIN [Concomitant]
  5. VITAMINS [Concomitant]

REACTIONS (2)
  - LOCAL SWELLING [None]
  - PRURITUS [None]
